FAERS Safety Report 4903564-4 (Version None)
Quarter: 2006Q1

REPORT INFORMATION
  Report Type: 
  Country: None (occurrence: None)
  Receive Date: 20060208
  Receipt Date: 20060104
  Transmission Date: 20060701
  Serious: Yes (Death, Hospitalization)
  Sender: FDA-Public Use
  Company Number: DE-BRISTOL-MYERS SQUIBB COMPANY-13241336

PATIENT
  Age: 41 Year
  Sex: Female

DRUGS (5)
  1. ERBITUX [Suspect]
     Indication: COLORECTAL CANCER METASTATIC
     Route: 041
     Dates: start: 20051108, end: 20051206
  2. AVASTIN [Concomitant]
     Indication: COLORECTAL CANCER METASTATIC
     Dates: start: 20051108, end: 20051206
  3. MST [Concomitant]
  4. OSYROL LASIX [Concomitant]
  5. PANTOZOL [Concomitant]
     Indication: PROPHYLAXIS

REACTIONS (1)
  - GASTRITIS HAEMORRHAGIC [None]
